FAERS Safety Report 8110894-4 (Version None)
Quarter: 2012Q1

REPORT INFORMATION
  Report Type: 
  Country: None (occurrence: None)
  Receive Date: 20120203
  Receipt Date: 20120124
  Transmission Date: 20120608
  Serious: Yes (Other)
  Sender: FDA-Public Use
  Company Number: US-AMGEN-USASP2012000420

PATIENT
  Age: 63 Year
  Sex: Female
  Weight: 67.13 kg

DRUGS (3)
  1. CALTRATE PLUS D [Concomitant]
     Dosage: UNK
  2. PROLIA [Suspect]
     Indication: OSTEOPOROSIS POSTMENOPAUSAL
     Dosage: 60 MG, Q6MO
     Route: 058
     Dates: start: 20111213
  3. MULTI-VITAMIN [Concomitant]

REACTIONS (5)
  - CELLULITIS [None]
  - FACE OEDEMA [None]
  - RASH [None]
  - EYE SWELLING [None]
  - ERYTHEMA [None]
